FAERS Safety Report 8891684 (Version 1)
Quarter: 2012Q4

REPORT INFORMATION
  Report Type: 
  Country: US (occurrence: US)
  Receive Date: 20121107
  Receipt Date: 20121107
  Transmission Date: 20130627
  Serious: No
  Sender: FDA-Public Use
  Company Number: US-AMGEN-USASP2011058702

PATIENT
  Age: 37 Year
  Sex: Female

DRUGS (11)
  1. ENBREL [Suspect]
     Indication: PRODUCT USED FOR UNKNOWN INDICATION
     Dosage: 50 mg, qwk
     Route: 058
  2. EFFEXOR XR [Concomitant]
     Dosage: 150 mg, UNK
  3. METHOTREXATE [Concomitant]
     Dosage: 2.5 mg, UNK
  4. TRAZODONE [Concomitant]
     Dosage: 100 mg, UNK
  5. ADVIL                              /00044201/ [Suspect]
     Dosage: 200 mg, UNK
  6. ALEVE [Concomitant]
     Dosage: 220 mg, UNK
  7. FERROUS SULFATE [Concomitant]
  8. MULTIVITAMIN                       /00097801/ [Concomitant]
  9. TRAMADOL HCL [Concomitant]
     Dosage: 100 mg, UNK
  10. SEASONALE [Concomitant]
  11. FOLIC ACID [Concomitant]
     Dosage: 20 mg, UNK

REACTIONS (1)
  - Fatigue [Unknown]
